FAERS Safety Report 24201586 (Version 1)
Quarter: 2024Q3

REPORT INFORMATION
  Report Type: Spontaneous
  Country: US (occurrence: None)
  Receive Date: 20240811
  Receipt Date: 20240811
  Transmission Date: 20241016
  Serious: Yes (Other)
  Sender: Public
  Company Number: None

PATIENT
  Age: 12 Year
  Sex: Female
  Weight: 48.15 kg

DRUGS (3)
  1. VERKAZIA [Suspect]
     Active Substance: CYCLOSPORINE
     Indication: Ocular hyperaemia
     Dosage: OTHER QUANTITY : 1 DROP(S)?FREQUENCY : 4 TIMES A DAY?
     Route: 047
     Dates: start: 20240808
  2. VERKAZIA [Suspect]
     Active Substance: CYCLOSPORINE
     Indication: Vision blurred
  3. flurometholone [Concomitant]

REACTIONS (2)
  - Eye pain [None]
  - Fatigue [None]

NARRATIVE: CASE EVENT DATE: 20240810
